FAERS Safety Report 24087627 (Version 2)
Quarter: 2024Q3

REPORT INFORMATION
  Report Type: Report from Study
  Country: US (occurrence: US)
  Receive Date: 20240714
  Receipt Date: 20240719
  Transmission Date: 20241016
  Serious: Yes (Hospitalization, Other)
  Sender: ABBVIE
  Company Number: US-ABBVIE-5836623

PATIENT
  Age: 59 Year
  Sex: Female
  Weight: 92 kg

DRUGS (2)
  1. RINVOQ [Suspect]
     Active Substance: UPADACITINIB
     Indication: Ankylosing spondylitis
     Dosage: FORM STRENGTH 15 MILLIGRAM
     Route: 048
     Dates: start: 20230904, end: 20240519
  2. CYMBALTA [Concomitant]
     Active Substance: DULOXETINE HYDROCHLORIDE
     Indication: Neuropathy peripheral
     Dosage: 30 MILLIGRAM

REACTIONS (1)
  - Spinal disorder [Not Recovered/Not Resolved]

NARRATIVE: CASE EVENT DATE: 20240501
